FAERS Safety Report 5859212-2 (Version None)
Quarter: 2008Q3

REPORT INFORMATION
  Report Type: 
  Country: None (occurrence: None)
  Receive Date: 20080826
  Receipt Date: 20080826
  Transmission Date: 20090109
  Serious: Yes (Hospitalization)
  Sender: FDA-Public Use
  Company Number: None

PATIENT
  Age: 30 Year
  Sex: Male

DRUGS (2)
  1. ABILIFY [Suspect]
     Indication: SCHIZOPHRENIA
     Dosage: 50MG QAM PO
     Route: 048
     Dates: start: 20070811
  2. ABILIFY [Suspect]
     Indication: SCHIZOPHRENIA
     Dosage: 50MG QAM PO
     Route: 048
     Dates: start: 20071202

REACTIONS (2)
  - ERECTION INCREASED [None]
  - PAINFUL ERECTION [None]
